FAERS Safety Report 12247006 (Version 1)
Quarter: 2016Q2

REPORT INFORMATION
  Report Type: Spontaneous
  Country: PH (occurrence: PH)
  Receive Date: 20160407
  Receipt Date: 20160407
  Transmission Date: 20160815
  Serious: Yes (Hospitalization, Other)
  Sender: FDA-Public Use
  Company Number: PHHY2015PH153650

PATIENT
  Age: 53 Year
  Sex: Male

DRUGS (3)
  1. TASIGNA [Suspect]
     Active Substance: NILOTINIB
     Dosage: 1 DF, BID
     Route: 048
     Dates: start: 20151014, end: 20151028
  2. TASIGNA [Suspect]
     Active Substance: NILOTINIB
     Dosage: 300 MG, QD
     Route: 048
     Dates: start: 20151028, end: 20151118
  3. TASIGNA [Suspect]
     Active Substance: NILOTINIB
     Indication: CHRONIC MYELOID LEUKAEMIA
     Dosage: 600 MG, QD
     Route: 048
     Dates: start: 20150917, end: 20151014

REACTIONS (6)
  - Pulmonary tuberculosis [Unknown]
  - Leukopenia [Recovering/Resolving]
  - Chills [Recovered/Resolved with Sequelae]
  - Thrombocytopenia [Recovering/Resolving]
  - Pyrexia [Recovered/Resolved with Sequelae]
  - Febrile neutropenia [Unknown]

NARRATIVE: CASE EVENT DATE: 20151014
